FAERS Safety Report 4523609-3 (Version None)
Quarter: 2004Q4

REPORT INFORMATION
  Report Type: 
  Country: None (occurrence: None)
  Receive Date: 20041210
  Receipt Date: 20041210
  Transmission Date: 20050328
  Serious: Yes (Hospitalization)
  Sender: FDA-Public Use
  Company Number: None

PATIENT
  Age: 71 Year
  Sex: Female
  Weight: 117.4816 kg

DRUGS (4)
  1. IRINOTECAN HCL [Suspect]
     Indication: RECTAL CANCER
     Dosage: 50 MG/M2 IV / 1 HR
     Route: 042
     Dates: start: 20041117
  2. IRINOTECAN HCL [Suspect]
     Indication: RECTAL CANCER
     Dosage: 50 MG/M2 IV / 1 HR
     Route: 042
     Dates: start: 20041124
  3. IRINOTECAN HCL [Suspect]
     Indication: RECTAL CANCER
     Dosage: 50 MG/M2 IV / 1 HR
     Route: 042
     Dates: start: 20041201
  4. CAPECITABINE [Suspect]
     Indication: RECTAL CANCER
     Dosage: 2500 MG DAILY
     Dates: start: 20041117

REACTIONS (5)
  - ASTHENIA [None]
  - DIARRHOEA [None]
  - HAEMOGLOBIN ABNORMAL [None]
  - MUSCLE CRAMP [None]
  - NEUTROPENIA [None]
